FAERS Safety Report 4586813-4 (Version None)
Quarter: 2005Q1

REPORT INFORMATION
  Report Type: 
  Country: None (occurrence: None)
  Receive Date: 20050218
  Receipt Date: 20041207
  Transmission Date: 20050727
  Serious: Yes (Other)
  Sender: FDA-Public Use
  Company Number: 200421940GDDC

PATIENT
  Age: 54 Year
  Sex: Male

DRUGS (7)
  1. EUGLUCON [Suspect]
     Indication: DIABETES MELLITUS NON-INSULIN-DEPENDENT
     Route: 048
     Dates: start: 20000114, end: 20041119
  2. URSO 250 [Suspect]
     Indication: HEPATITIS C
     Route: 048
     Dates: start: 20030606, end: 20040213
  3. ROHYPNOL [Suspect]
     Indication: INSOMNIA
     Route: 048
  4. BASEN [Suspect]
     Indication: DIABETES MELLITUS
     Route: 048
     Dates: start: 20000804, end: 20030508
  5. NORVASC [Concomitant]
     Dosage: DOSE: UNK
     Dates: start: 20040731
  6. CONAN [Concomitant]
     Dosage: DOSE: UNK
     Dates: start: 20040508, end: 20040604
  7. DIOVAN [Concomitant]
     Dosage: DOSE: UNK
     Dates: start: 20040605, end: 20040730

REACTIONS (11)
  - ALANINE AMINOTRANSFERASE INCREASED [None]
  - ASPARTATE AMINOTRANSFERASE INCREASED [None]
  - BILIARY TRACT DISORDER [None]
  - ERYTHEMA [None]
  - FEELING HOT [None]
  - HEPATIC FUNCTION ABNORMAL [None]
  - HYPERSENSITIVITY [None]
  - INTERSTITIAL LUNG DISEASE [None]
  - LIVER DISORDER [None]
  - RASH [None]
  - RASH PAPULAR [None]
